FAERS Safety Report 4543228-2 (Version None)
Quarter: 2005Q1

REPORT INFORMATION
  Report Type: 
  Country: None (occurrence: None)
  Receive Date: 20050103
  Receipt Date: 20041221
  Transmission Date: 20050727
  Serious: Yes (Hospitalization)
  Sender: FDA-Public Use
  Company Number: FR-BRISTOL-MYERS SQUIBB COMPANY-12804985

PATIENT
  Age: 45 Year
  Sex: Male

DRUGS (2)
  1. APROVEL [Suspect]
     Route: 048
     Dates: start: 20040415, end: 20041025
  2. TENORDATE [Suspect]
     Route: 048
     Dates: start: 19980701, end: 20041025

REACTIONS (11)
  - BLOOD IMMUNOGLOBULIN A INCREASED [None]
  - BLOOD IMMUNOGLOBULIN G INCREASED [None]
  - DERMATITIS EXFOLIATIVE [None]
  - GLOMERULONEPHRITIS [None]
  - HYPERGAMMAGLOBULINAEMIA [None]
  - OEDEMA PERIPHERAL [None]
  - PAIN IN EXTREMITY [None]
  - PITYRIASIS ROSEA [None]
  - PROTEINURIA [None]
  - VASCULAR PURPURA [None]
  - VASCULITIS [None]
